FAERS Safety Report 8860666 (Version 2)
Quarter: 2012Q4

REPORT INFORMATION
  Report Type: 
  Country: US (occurrence: US)
  Receive Date: 20121025
  Receipt Date: 20121031
  Transmission Date: 20130627
  Serious: Yes (Death)
  Sender: FDA-Public Use
  Company Number: US-009507513-1210USA011001

PATIENT
  Age: 68 Year
  Sex: Male

DRUGS (2)
  1. REMERON [Suspect]
     Route: 048
  2. LUNESTA [Concomitant]

REACTIONS (1)
  - Completed suicide [Fatal]
